FAERS Safety Report 6549303-5 (Version None)
Quarter: 2010Q1

REPORT INFORMATION
  Report Type: 
  Country: None (occurrence: None)
  Receive Date: 20100125
  Receipt Date: 20100112
  Transmission Date: 20100710
  Serious: Yes (Other)
  Sender: FDA-Public Use
  Company Number: US-JNJFOC-20100104192

PATIENT
  Sex: Male
  Weight: 99.34 kg

DRUGS (2)
  1. REMICADE [Suspect]
     Indication: PSORIATIC ARTHROPATHY
     Route: 042
  2. METHOTREXATE [Suspect]
     Indication: DRUG USE FOR UNKNOWN INDICATION

REACTIONS (11)
  - AMNESIA [None]
  - BALANCE DISORDER [None]
  - CEREBROVASCULAR DISORDER [None]
  - HAEMATOCHEZIA [None]
  - HYPERTENSION [None]
  - HYPOAESTHESIA [None]
  - INCORRECT DOSE ADMINISTERED [None]
  - PARAESTHESIA [None]
  - PERSONALITY CHANGE [None]
  - RED BLOOD CELL COUNT INCREASED [None]
  - VISUAL IMPAIRMENT [None]
